FAERS Safety Report 15868507 (Version 1)
Quarter: 2019Q1

REPORT INFORMATION
  Report Type: Spontaneous
  Country: US (occurrence: US)
  Receive Date: 20190125
  Receipt Date: 20190125
  Transmission Date: 20190417
  Serious: Yes (Death, Hospitalization)
  Sender: FDA-Public Use
  Company Number: US-SAOL THERAPEUTICS-2019SAO00025

PATIENT
  Age: 18 Year
  Sex: Male

DRUGS (3)
  1. LIORESAL [Suspect]
     Active Substance: BACLOFEN
     Indication: MUSCLE SPASTICITY
     Dosage: 899.9 ?G, \DAY
     Route: 037
     Dates: end: 20190118
  2. NON-PUMP MEDICATIONS [Concomitant]
  3. LIORESAL [Suspect]
     Active Substance: BACLOFEN
     Indication: CEREBRAL PALSY

REACTIONS (2)
  - Death [Fatal]
  - Gastrointestinal necrosis [Unknown]

NARRATIVE: CASE EVENT DATE: 20190118
